FAERS Safety Report 11916962 (Version 2)
Quarter: 2016Q1

REPORT INFORMATION
  Report Type: Spontaneous
  Country: US (occurrence: US)
  Receive Date: 20160114
  Receipt Date: 20160122
  Transmission Date: 20160526
  Serious: No
  Sender: FDA-Public Use
  Company Number: US-PFIZER INC-2015456717

PATIENT
  Age: 82 Year
  Sex: Male
  Weight: 84 kg

DRUGS (1)
  1. CLINDAMYCIN HCL [Suspect]
     Active Substance: CLINDAMYCIN HYDROCHLORIDE
     Indication: CELLULITIS
     Dosage: UNK
     Dates: start: 20151025

REACTIONS (1)
  - Drug ineffective [Unknown]
